FAERS Safety Report 25641531 (Version 1)
Quarter: 2025Q3

REPORT INFORMATION
  Report Type: Spontaneous
  Country: US (occurrence: US)
  Receive Date: 20250804
  Receipt Date: 20250804
  Transmission Date: 20251020
  Serious: No
  Sender: NOVARTIS
  Company Number: US-002147023-NVSC2025US117855

PATIENT
  Sex: Female

DRUGS (1)
  1. MEKINIST [Suspect]
     Active Substance: TRAMETINIB DIMETHYL SULFOXIDE
     Indication: Chylothorax
     Dosage: 3 ML, QD (VIA G TUBE)
     Route: 048
     Dates: start: 202304

REACTIONS (4)
  - Food allergy [Unknown]
  - Milk allergy [Unknown]
  - Allergy to animal [Unknown]
  - Off label use [Unknown]
